FAERS Safety Report 22591912 (Version 1)
Quarter: 2023Q2

REPORT INFORMATION
  Report Type: Spontaneous
  Country: US (occurrence: None)
  Receive Date: 20230612
  Receipt Date: 20230612
  Transmission Date: 20230722
  Serious: No
  Sender: FDA-Public Use
  Company Number: US-ROCHE-3119765

PATIENT
  Age: 83 Year
  Sex: Male
  Weight: 97.61 kg

DRUGS (7)
  1. TECENTRIQ [Suspect]
     Active Substance: ATEZOLIZUMAB
     Indication: Bladder cancer
     Route: 042
  2. TAMSULOSIN [Concomitant]
     Active Substance: TAMSULOSIN
     Dosage: ONGOING: YES
     Route: 048
     Dates: start: 2020
  3. ASPIRIN [Concomitant]
     Active Substance: ASPIRIN
     Dosage: ONGOING: YES
     Route: 048
  4. ROSUVASTATIN [Concomitant]
     Active Substance: ROSUVASTATIN
     Dosage: ONGOING: YES
     Route: 048
     Dates: start: 2021
  5. METOPROLOL [Concomitant]
     Active Substance: METOPROLOL
     Dosage: ONGOING: YES
     Route: 048
  6. SERTRALINE [Concomitant]
     Active Substance: SERTRALINE HYDROCHLORIDE
     Dosage: ONGOING: YES
     Route: 048
  7. LEVOTHYROXINE [Concomitant]
     Active Substance: LEVOTHYROXINE
     Dosage: ONGOING: YES
     Route: 048
     Dates: start: 2021

REACTIONS (3)
  - Fatigue [Not Recovered/Not Resolved]
  - Off label use [Unknown]
  - Hypoaesthesia [Not Recovered/Not Resolved]

NARRATIVE: CASE EVENT DATE: 20220201
